FAERS Safety Report 5769933-8 (Version None)
Quarter: 2008Q2

REPORT INFORMATION
  Report Type: 
  Country: None (occurrence: None)
  Receive Date: 20080613
  Receipt Date: 20080415
  Transmission Date: 20081010
  Serious: No
  Sender: FDA-Public Use
  Company Number: US-ABBOTT-08P-163-0447226-00

PATIENT
  Sex: Female
  Weight: 61.29 kg

DRUGS (4)
  1. HUMIRA [Suspect]
     Indication: COLITIS
     Dates: start: 20080401, end: 20080401
  2. HUMIRA [Suspect]
  3. NESALMINE [Concomitant]
     Indication: COLITIS
  4. LANSOPRAZOLE [Concomitant]
     Indication: GASTROOESOPHAGEAL REFLUX DISEASE

REACTIONS (2)
  - ESCHERICHIA URINARY TRACT INFECTION [None]
  - FUNGAL INFECTION [None]
